FAERS Safety Report 6657805-6 (Version None)
Quarter: 2010Q1

REPORT INFORMATION
  Report Type: 
  Country: None (occurrence: None)
  Receive Date: 20100330
  Receipt Date: 20100319
  Transmission Date: 20100710
  Serious: Yes (Hospitalization)
  Sender: FDA-Public Use
  Company Number: FR-GENENTECH-299567

PATIENT
  Sex: Female

DRUGS (7)
  1. MABTHERA [Suspect]
     Indication: SYSTEMIC LUPUS ERYTHEMATOSUS
     Dosage: 1 G, UNK
     Route: 042
     Dates: start: 20091120, end: 20091204
  2. CYCLOPHOSPHAMIDE [Suspect]
     Indication: SYSTEMIC LUPUS ERYTHEMATOSUS
     Dosage: 1 G, UNK
     Route: 042
     Dates: start: 20090202, end: 20091012
  3. CYCLOPHOSPHAMIDE [Suspect]
     Dosage: 1 G, UNK
     Route: 040
     Dates: start: 20091120, end: 20091204
  4. CYCLOPHOSPHAMIDE [Suspect]
     Dosage: UNK TABLET, UNK
     Route: 048
     Dates: start: 20061224, end: 20100217
  5. PLAQUENIL [Concomitant]
     Indication: SYSTEMIC LUPUS ERYTHEMATOSUS
     Dosage: 200 UNK, BID
     Dates: start: 20090327, end: 20091120
  6. PLAQUENIL [Concomitant]
     Dosage: UNK
  7. IMUREL [Concomitant]
     Indication: DRUG USE FOR UNKNOWN INDICATION
     Dosage: UNK
     Dates: end: 20091205

REACTIONS (1)
  - PROGRESSIVE MULTIFOCAL LEUKOENCEPHALOPATHY [None]
